FAERS Safety Report 4390018-X (Version None)
Quarter: 2004Q2

REPORT INFORMATION
  Report Type: 
  Country: None (occurrence: None)
  Receive Date: 20040630
  Receipt Date: 20040616
  Transmission Date: 20050107
  Serious: Yes (Death, Hospitalization)
  Sender: FDA-Public Use
  Company Number: 2004214656CA

PATIENT
  Age: 87 Year
  Sex: Female

DRUGS (14)
  1. CELEBREX [Suspect]
     Indication: ARTHRALGIA
     Dosage: 200 MG, BID, ORAL
     Route: 048
     Dates: start: 20040415, end: 20040418
  2. WARFARIN(WARFARIN) TABLET [Suspect]
     Indication: ATRIAL FIBRILLATION
     Dosage: 1.5 MG, QD, ORAL
     Route: 048
     Dates: end: 20040418
  3. CELEXA [Concomitant]
  4. CALCIUM [Concomitant]
  5. VITAMIN D [Concomitant]
  6. NEURONTIN [Concomitant]
  7. LANOXIN [Concomitant]
  8. TIAZAC [Concomitant]
  9. VASOTEC [Concomitant]
  10. SORIATANE [Concomitant]
  11. COLACE (DOCUSATE SODIUM) [Concomitant]
  12. SENOKOT [Concomitant]
  13. FERROUS SULFATE TAB [Concomitant]
  14. TYLENOL [Concomitant]

REACTIONS (6)
  - BLOOD PRESSURE SYSTOLIC INCREASED [None]
  - BODY TEMPERATURE INCREASED [None]
  - CEREBRAL HAEMORRHAGE [None]
  - CONFUSIONAL STATE [None]
  - DRUG INTERACTION [None]
  - HYPERKALAEMIA [None]
